FAERS Safety Report 8922528 (Version 1)
Quarter: 2012Q4

REPORT INFORMATION
  Report Type: 
  Country: US (occurrence: US)
  Receive Date: 20121126
  Receipt Date: 20121126
  Transmission Date: 20130627
  Serious: Yes (Hospitalization, Other)
  Sender: FDA-Public Use
  Company Number: US-ASTRAZENECA-2012SE87201

PATIENT
  Age: 48 Year
  Sex: Female

DRUGS (31)
  1. SEROQUEL [Suspect]
     Route: 048
     Dates: start: 20040308
  2. NEXIUM [Suspect]
     Route: 048
     Dates: start: 20021020
  3. ZESTRIL [Suspect]
     Route: 048
     Dates: start: 20001020
  4. METOPROLOL [Suspect]
     Route: 048
     Dates: start: 20020104
  5. GLYBURIDE [Concomitant]
     Dates: start: 20001020
  6. AUGMENTIN [Concomitant]
     Dosage: 875-125
     Dates: start: 20001109
  7. GUAIFENEX DM [Concomitant]
     Dates: start: 20001109
  8. EFFEXOR XR [Concomitant]
     Dosage: 37.5 TO 75 MG
     Dates: start: 20010116
  9. CLONAZEPAM [Concomitant]
     Dates: start: 20010116
  10. BENZTROPINE MES [Concomitant]
     Dates: start: 20010116
  11. RISPERDAL [Concomitant]
     Dates: start: 20010116
  12. AVANDIA [Concomitant]
     Dates: start: 20010122
  13. FUROSEMIDE [Concomitant]
     Dates: start: 20011026
  14. ACTOS [Concomitant]
     Dates: start: 20011115
  15. ZOCOR [Concomitant]
     Dates: start: 20011120
  16. PREVACID [Concomitant]
     Dates: start: 20011120
  17. WELLBUTRIN SR [Concomitant]
     Dates: start: 20011220
  18. AKINETON [Concomitant]
     Dates: start: 20011220
  19. AMOXICILLIN [Concomitant]
     Dates: start: 20020104
  20. COREG [Concomitant]
     Dates: start: 20020809
  21. POTASSIUM CL [Concomitant]
     Dates: start: 20020819
  22. ISOSORBIDE MN [Concomitant]
     Dates: start: 20020822
  23. TORSEMIDE [Concomitant]
     Dates: start: 20021026
  24. DIGOXIN [Concomitant]
     Dates: start: 20021105
  25. ABILIFY [Concomitant]
     Dates: start: 20031105
  26. AMBIEN [Concomitant]
     Dates: start: 20031119
  27. TRICOR [Concomitant]
     Dates: start: 20031203
  28. ZITHROMAX [Concomitant]
     Dates: start: 20031219
  29. DEPAKOTE ER [Concomitant]
     Dates: start: 20040105
  30. SONATA [Concomitant]
     Dates: start: 20040211
  31. GEODON [Concomitant]
     Dates: start: 20040308

REACTIONS (60)
  - Transient ischaemic attack [Unknown]
  - Gallbladder disorder [Unknown]
  - Ophthalmoplegia [Unknown]
  - IIIrd nerve paralysis [Unknown]
  - Eye pain [Unknown]
  - Eyelid ptosis [Unknown]
  - Diplopia [Unknown]
  - Brain neoplasm [Unknown]
  - Cardiac failure congestive [Unknown]
  - Neck mass [Unknown]
  - Nervous system disorder [Unknown]
  - Cerebral atrophy [Unknown]
  - Central nervous system lesion [Unknown]
  - Cerebral infarction [Unknown]
  - Asthma [Unknown]
  - Sleep disorder [Unknown]
  - Diabetes mellitus inadequate control [Unknown]
  - Feeling guilty [Unknown]
  - Confusional state [Unknown]
  - Thinking abnormal [Unknown]
  - Depressed mood [Unknown]
  - Suspiciousness [Unknown]
  - Malaise [Unknown]
  - Feeling of despair [Unknown]
  - Lethargy [Unknown]
  - Cardiac disorder [Unknown]
  - Drug ineffective [Unknown]
  - Abdominal pain upper [Unknown]
  - Deafness [Unknown]
  - Tinnitus [Unknown]
  - Depression [Unknown]
  - Hypertension [Unknown]
  - Diabetes mellitus [Unknown]
  - Blood cholesterol abnormal [Unknown]
  - Hyperlipidaemia [Unknown]
  - Thyroid neoplasm [Unknown]
  - Gastrooesophageal reflux disease [Unknown]
  - Impaired gastric emptying [Unknown]
  - Glaucoma [Unknown]
  - Eustachian tube dysfunction [Unknown]
  - Dysphagia [Unknown]
  - Cardiac murmur [Unknown]
  - Chronic obstructive pulmonary disease [Unknown]
  - Osteoarthritis [Unknown]
  - Anaemia [Unknown]
  - Paranoia [Unknown]
  - Persecutory delusion [Unknown]
  - Constricted affect [Unknown]
  - Anxiety [Unknown]
  - Slow speech [Unknown]
  - Hallucination, auditory [Unknown]
  - Anger [Unknown]
  - Stress [Unknown]
  - Mood altered [Unknown]
  - Irritability [Unknown]
  - Hypercholesterolaemia [Unknown]
  - Insomnia [Unknown]
  - Bronchitis [Unknown]
  - Bronchiolitis [Unknown]
  - Bronchitis chronic [Unknown]
